FAERS Safety Report 24988002 (Version 1)
Quarter: 2025Q1

REPORT INFORMATION
  Report Type: Spontaneous
  Country: CN (occurrence: CN)
  Receive Date: 20250220
  Receipt Date: 20250220
  Transmission Date: 20250408
  Serious: Yes (Hospitalization, Other)
  Sender: Haleon PLC
  Company Number: CN-HALEON-2228812

PATIENT
  Age: 52 Year
  Sex: Male
  Weight: 70 kg

DRUGS (2)
  1. IBUPROFEN [Suspect]
     Active Substance: IBUPROFEN
     Indication: Headache
     Dosage: SUSTAINED RELEASE CAPSULES
     Route: 048
     Dates: start: 20241113, end: 20241113
  2. IBUPROFEN [Suspect]
     Active Substance: IBUPROFEN
     Dosage: SUSTAINED RELEASE CAPSULES
     Route: 048
     Dates: start: 20241114, end: 20241114

REACTIONS (7)
  - Upper gastrointestinal haemorrhage [Recovered/Resolved]
  - Dizziness [Recovering/Resolving]
  - Faeces discoloured [Recovering/Resolving]
  - Asthenia [Recovering/Resolving]
  - Diarrhoea [Recovering/Resolving]
  - Headache [Recovering/Resolving]
  - Condition aggravated [Recovered/Resolved]

NARRATIVE: CASE EVENT DATE: 20241114
